FAERS Safety Report 5687390-7 (Version None)
Quarter: 2008Q1

REPORT INFORMATION
  Report Type: 
  Country: None (occurrence: None)
  Receive Date: 20080328
  Receipt Date: 20061129
  Transmission Date: 20080703
  Serious: No
  Sender: FDA-Public Use
  Company Number: US-BAYER-US-2006-037336

PATIENT
  Age: 32 Year
  Sex: Female
  Weight: 61 kg

DRUGS (1)
  1. MIRENA [Suspect]
     Indication: CONTRACEPTION
     Dates: start: 20051201, end: 20061115

REACTIONS (6)
  - ALOPECIA [None]
  - AURA [None]
  - BACK PAIN [None]
  - BREAST TENDERNESS [None]
  - HEADACHE [None]
  - NECK PAIN [None]
